FAERS Safety Report 9353064 (Version 1)
Quarter: 2013Q2

REPORT INFORMATION
  Report Type: Spontaneous
  Country: JP (occurrence: JP)
  Receive Date: 20130618
  Receipt Date: 20130618
  Transmission Date: 20140414
  Serious: Yes (Other)
  Sender: FDA-Public Use
  Company Number: JP-RANBAXY-2013RR-70182

PATIENT
  Age: 76 Year
  Sex: Female

DRUGS (5)
  1. RANITIDINE [Suspect]
     Indication: GASTRITIS
     Dosage: 150 MG, QD
     Route: 048
     Dates: start: 201301
  2. AMLODIPINE [Suspect]
     Indication: PRODUCT USED FOR UNKNOWN INDICATION
     Dosage: 5 MG, QD
     Route: 048
     Dates: start: 201301
  3. CALCIUM L-ASPARTATE HYDRATE [Suspect]
     Indication: PRODUCT USED FOR UNKNOWN INDICATION
     Dosage: 400 MG, BID
     Route: 048
     Dates: start: 201301
  4. BONOTEO [Suspect]
     Indication: PRODUCT USED FOR UNKNOWN INDICATION
     Dosage: 50 MG, MONTHLY
     Route: 048
  5. BROTIZOLAM [Suspect]
     Indication: PRODUCT USED FOR UNKNOWN INDICATION
     Dosage: 0.125 MG, QD
     Route: 065
     Dates: start: 201301

REACTIONS (1)
  - Liver disorder [Recovering/Resolving]
